FAERS Safety Report 4658393-6 (Version None)
Quarter: 2005Q2

REPORT INFORMATION
  Report Type: 
  Country: None (occurrence: None)
  Receive Date: 20050509
  Receipt Date: 20050425
  Transmission Date: 20051028
  Serious: Yes (Other)
  Sender: FDA-Public Use
  Company Number: HQWYE017416DEC04

PATIENT
  Age: 53 Year
  Sex: Female
  Weight: 70.82 kg

DRUGS (2)
  1. PREMARIN [Suspect]
     Indication: HORMONE REPLACEMENT THERAPY
     Dosage: NOT SPECIFIED, ORAL
     Route: 048
     Dates: start: 19920701, end: 19981101
  2. PROVERA [Suspect]
     Indication: HORMONE REPLACEMENT THERAPY
     Dosage: NOT SPECIFIED, ORAL
     Route: 048
     Dates: start: 19920701, end: 19981101

REACTIONS (5)
  - ANXIETY [None]
  - ARTHRALGIA [None]
  - BREAST CANCER METASTATIC [None]
  - DEPRESSION [None]
  - SWELLING [None]
